FAERS Safety Report 18596006 (Version 1)
Quarter: 2020Q4

REPORT INFORMATION
  Report Type: Spontaneous
  Country: US (occurrence: US)
  Receive Date: 20201209
  Receipt Date: 20201209
  Transmission Date: 20210114
  Serious: No
  Sender: FDA-Public Use
  Company Number: US-SUPERNUS PHARMACEUTICALS, INC.-2020SUP00294

PATIENT
  Sex: Male
  Weight: 104.31 kg

DRUGS (6)
  1. TROKENDI XR [Suspect]
     Active Substance: TOPIRAMATE
     Indication: MIGRAINE
     Dosage: 25 MG, 1X/DAY EVERY NIGHT BEFORE BED
     Route: 048
     Dates: start: 20200710, end: 20200716
  2. UNSPECIFIED ANTIBIOTIC [Concomitant]
     Active Substance: UNSPECIFIED INGREDIENT
  3. TROKENDI XR [Suspect]
     Active Substance: TOPIRAMATE
     Indication: MIGRAINE
     Dosage: 100 MG, 1X/DAY EVERY NIGHT BEFORE BED
     Route: 048
     Dates: start: 20200731, end: 202009
  4. TROKENDI XR [Suspect]
     Active Substance: TOPIRAMATE
     Dosage: 25 MG, 1X/DAY WITH 50 MG CAPSULE FOR A TOTAL DAILY DOSE OF 75 MG
     Route: 048
     Dates: start: 20200724, end: 20200730
  5. TROKENDI XR [Suspect]
     Active Substance: TOPIRAMATE
     Indication: MIGRAINE
     Dosage: 50 MG, 1X/DAY EVERY NIGHT BEFORE BED
     Route: 048
     Dates: start: 20200717, end: 20200723
  6. TROKENDI XR [Suspect]
     Active Substance: TOPIRAMATE
     Dosage: 50 MG, 1X/DAY WITH 25 MG CAPSULE FOR A TOTAL DAILY DOSE OF 75 MG
     Route: 048
     Dates: start: 20200724, end: 20200730

REACTIONS (2)
  - Feeling abnormal [Recovering/Resolving]
  - Dyspepsia [Recovering/Resolving]

NARRATIVE: CASE EVENT DATE: 2020
